FAERS Safety Report 13495776 (Version 1)
Quarter: 2017Q2

REPORT INFORMATION
  Report Type: Report from Study
  Country: US (occurrence: US)
  Receive Date: 20170428
  Receipt Date: 20170428
  Transmission Date: 20170830
  Serious: Yes (Hospitalization)
  Sender: FDA-Public Use
  Company Number: US-ROCHE-1922013

PATIENT
  Age: 67 Year
  Sex: Female
  Weight: 53.8 kg

DRUGS (12)
  1. ATEZOLIZUMAB [Suspect]
     Active Substance: ATEZOLIZUMAB
     Indication: SYNOVIAL SARCOMA
  2. CMB305 [Suspect]
     Active Substance: INVESTIGATIONAL PRODUCT
     Dosage: G305 + LV305
     Route: 030
     Dates: start: 20161117
  3. SPIRONOLACTONE. [Concomitant]
     Active Substance: SPIRONOLACTONE
     Dosage: G305 + LV305
     Route: 048
     Dates: start: 201511
  4. FUROSEMIDE. [Concomitant]
     Active Substance: FUROSEMIDE
     Route: 048
     Dates: start: 2015
  5. CMB305 [Suspect]
     Active Substance: INVESTIGATIONAL PRODUCT
     Dosage: LAST DOSE: 02/FEB/2017?G305 + LV305
     Route: 030
     Dates: start: 20161117
  6. CARVEDILOL. [Concomitant]
     Active Substance: CARVEDILOL
     Route: 048
     Dates: start: 201511
  7. OXYCODONE [Concomitant]
     Active Substance: OXYCODONE
     Route: 048
     Dates: start: 20170202
  8. ATEZOLIZUMAB [Suspect]
     Active Substance: ATEZOLIZUMAB
     Indication: NEOPLASM MALIGNANT
     Route: 042
     Dates: start: 20161021
  9. GABAPENTIN. [Concomitant]
     Active Substance: GABAPENTIN
     Route: 048
     Dates: start: 2015
  10. ATORVASTATIN [Concomitant]
     Active Substance: ATORVASTATIN
     Route: 048
     Dates: start: 2012
  11. SCOPOLAMINE [Concomitant]
     Active Substance: SCOPOLAMINE
     Dosage: REPORTED AS: SCOPOLAMINE PATCH?1 PATCH
     Route: 065
     Dates: start: 20170130
  12. CMB305 [Suspect]
     Active Substance: INVESTIGATIONAL PRODUCT
     Indication: NEOPLASM MALIGNANT
     Dosage: DOSE: 1 X10^10 VG, LV305
     Route: 023
     Dates: start: 20161021

REACTIONS (2)
  - Acute left ventricular failure [Recovered/Resolved]
  - Nausea [Unknown]

NARRATIVE: CASE EVENT DATE: 20170212
